FAERS Safety Report 13271674 (Version 2)
Quarter: 2017Q1

REPORT INFORMATION
  Report Type: Spontaneous
  Country: CO (occurrence: CO)
  Receive Date: 20170227
  Receipt Date: 20170317
  Transmission Date: 20170428
  Serious: Yes (Hospitalization, Other)
  Sender: FDA-Public Use
  Company Number: CO-ROCHE-1899100

PATIENT
  Age: 52 Year
  Sex: Female

DRUGS (5)
  1. XOLAIR [Suspect]
     Active Substance: OMALIZUMAB
     Indication: URTICARIA
     Dosage: 300 MG, UNK
     Route: 058
     Dates: start: 20170124
  2. MONTELUKAST [Concomitant]
     Active Substance: MONTELUKAST SODIUM
     Indication: ASTHMA
     Dosage: 10 MG, UNK
     Route: 065
  3. SALBUTAMOL [Concomitant]
     Active Substance: ALBUTEROL
     Indication: PRODUCT USED FOR UNKNOWN INDICATION
     Route: 065
  4. LEVOCETIRIZINE [Concomitant]
     Active Substance: LEVOCETIRIZINE
     Indication: PRODUCT USED FOR UNKNOWN INDICATION
     Route: 065
  5. BECLOMETHASONE [Concomitant]
     Active Substance: BECLOMETHASONE
     Indication: PRODUCT USED FOR UNKNOWN INDICATION
     Route: 065

REACTIONS (14)
  - Mite allergy [Unknown]
  - Abdominal pain lower [Unknown]
  - Cough [Unknown]
  - Hyperventilation [Unknown]
  - Sneezing [Unknown]
  - Presyncope [Unknown]
  - Skin oedema [Unknown]
  - Respiratory arrest [Unknown]
  - Tachycardia [Unknown]
  - Anaphylactic shock [Unknown]
  - Vomiting [Unknown]
  - Dyspnoea [Unknown]
  - Hypotension [Unknown]
  - Wheezing [Unknown]

NARRATIVE: CASE EVENT DATE: 20170124
